FAERS Safety Report 6358406-X (Version None)
Quarter: 2009Q3

REPORT INFORMATION
  Report Type: 
  Country: None (occurrence: None)
  Receive Date: 20090911
  Receipt Date: 20090831
  Transmission Date: 20100115
  Serious: Yes (Hospitalization)
  Sender: FDA-Public Use
  Company Number: 230030J09BRA

PATIENT
  Age: 56 Year
  Sex: Female

DRUGS (7)
  1. REBIF [Suspect]
     Indication: RELAPSING-REMITTING MULTIPLE SCLEROSIS
     Dosage: 44 MCG, 3 IN 1 WEEKS
     Dates: start: 20060530
  2. TIZANIDINE HCL [Concomitant]
  3. CARBAMAZEPINE [Concomitant]
  4. AMITRIPTYLINE HCL [Concomitant]
  5. METHOTREXATE (METHOTREXATE /00113801/) [Concomitant]
  6. PARACETAMOL (PARACETAMOL) [Concomitant]
  7. FOLIC ACID [Concomitant]

REACTIONS (3)
  - MULTIPLE SCLEROSIS RELAPSE [None]
  - PARAPLEGIA [None]
  - URINARY TRACT INFECTION [None]
